FAERS Safety Report 16979951 (Version 1)
Quarter: 2019Q4

REPORT INFORMATION
  Report Type: Spontaneous
  Country: FR (occurrence: FR)
  Receive Date: 20191031
  Receipt Date: 20191031
  Transmission Date: 20200122
  Serious: Yes (Hospitalization)
  Sender: FDA-Public Use
  Company Number: FR-ASTRAZENECA-2019SF51340

PATIENT
  Age: 67 Year
  Sex: Male
  Weight: 120 kg

DRUGS (14)
  1. SPIRONOLACTONE. [Concomitant]
     Active Substance: SPIRONOLACTONE
  2. KARDEGIC [Suspect]
     Active Substance: ASPIRIN DL-LYSINE
     Indication: ATRIAL FIBRILLATION
     Route: 048
     Dates: end: 20180606
  3. PROCORALAN [Concomitant]
     Active Substance: IVABRADINE
  4. FUROSEMIDE. [Concomitant]
     Active Substance: FUROSEMIDE
  5. DESLORATADINE. [Concomitant]
     Active Substance: DESLORATADINE
  6. JANUVIA [Concomitant]
     Active Substance: SITAGLIPTIN PHOSPHATE
  7. BISOPROLOL (HEMIFUMARATE OF) [Concomitant]
     Active Substance: BISOPROLOL FUMARATE
  8. PERINDOPRIL [Concomitant]
     Active Substance: PERINDOPRIL
  9. XARELTO [Suspect]
     Active Substance: RIVAROXABAN
     Indication: ATRIAL FIBRILLATION
     Route: 048
     Dates: end: 20180528
  10. ESOMEPRAZOLE. [Suspect]
     Active Substance: ESOMEPRAZOLE MAGNESIUM
     Indication: PRODUCT USED FOR UNKNOWN INDICATION
     Route: 048
     Dates: end: 20180528
  11. ALLOPURINOL. [Suspect]
     Active Substance: ALLOPURINOL
     Indication: PRODUCT USED FOR UNKNOWN INDICATION
     Route: 048
     Dates: end: 20180528
  12. EZETROL [Suspect]
     Active Substance: EZETIMIBE
     Indication: PRODUCT USED FOR UNKNOWN INDICATION
     Route: 048
     Dates: end: 20180530
  13. SALBUTAMOL [Concomitant]
     Active Substance: ALBUTEROL
  14. AMIODARONE [Concomitant]
     Active Substance: AMIODARONE

REACTIONS (3)
  - Drug ineffective [Recovered/Resolved]
  - Ischaemic stroke [Recovered/Resolved with Sequelae]
  - Rhabdomyolysis [Recovered/Resolved]

NARRATIVE: CASE EVENT DATE: 20180528
